FAERS Safety Report 5936080-1 (Version None)
Quarter: 2008Q4

REPORT INFORMATION
  Report Type: 
  Country: None (occurrence: None)
  Receive Date: 20081030
  Receipt Date: 20081020
  Transmission Date: 20090506
  Serious: Yes (Hospitalization, Other)
  Sender: FDA-Public Use
  Company Number: US-PFIZER INC-2008072794

PATIENT
  Sex: Female
  Weight: 77 kg

DRUGS (7)
  1. AROMASIN [Suspect]
     Indication: BREAST CANCER
     Route: 048
     Dates: start: 20071219
  2. TRIPTORELIN [Suspect]
     Indication: BREAST CANCER
     Route: 030
     Dates: start: 20071219, end: 20080922
  3. TYLENOL [Concomitant]
  4. PERCOCET [Concomitant]
  5. PROTONIX [Concomitant]
  6. ZOLOFT [Concomitant]
  7. MULTI-VITAMINS [Concomitant]

REACTIONS (1)
  - PULMONARY EMBOLISM [None]
